FAERS Safety Report 4591021-7 (Version None)
Quarter: 2005Q1

REPORT INFORMATION
  Report Type: 
  Country: None (occurrence: None)
  Receive Date: 20050225
  Receipt Date: 20041007
  Transmission Date: 20050727
  Serious: Yes (Hospitalization, Other)
  Sender: FDA-Public Use
  Company Number: ES-BRISTOL-MYERS SQUIBB COMPANY-12733259

PATIENT
  Age: 69 Year
  Sex: Male

DRUGS (1)
  1. ERBITUX [Suspect]
     Indication: COLON CANCER
     Route: 042
     Dates: start: 20040719

REACTIONS (4)
  - MENINGITIS [None]
  - MENINGITIS ASEPTIC [None]
  - PLEOCYTOSIS [None]
  - RENAL FAILURE ACUTE [None]
